FAERS Safety Report 10208746 (Version 1)
Quarter: 2014Q2

REPORT INFORMATION
  Report Type: Spontaneous
  Country: IT (occurrence: IT)
  Receive Date: 20140530
  Receipt Date: 20140530
  Transmission Date: 20141212
  Serious: Yes (Hospitalization, Other)
  Sender: FDA-Public Use
  Company Number: IT-ELI_LILLY_AND_COMPANY-IT201405006274

PATIENT
  Age: 77 Year
  Sex: Male

DRUGS (5)
  1. HUMALOG LISPRO [Suspect]
     Indication: DIABETES MELLITUS
     Dosage: 6 U, EACH MORNING
     Route: 058
     Dates: start: 20130101, end: 20131215
  2. HUMALOG LISPRO [Suspect]
     Dosage: 8 U, QD
     Route: 058
     Dates: start: 20130101, end: 20131215
  3. HUMALOG LISPRO [Suspect]
     Dosage: 10 U, EACH EVENING
     Route: 058
     Dates: start: 20130101, end: 20131215
  4. METFORMIN [Suspect]
     Indication: DIABETES MELLITUS
     Dosage: 2 DF, QD
     Route: 048
     Dates: start: 20130101, end: 20131215
  5. LANTUS [Suspect]
     Indication: DIABETES MELLITUS
     Dosage: 10 U, QD
     Route: 058
     Dates: start: 20130101, end: 20131215

REACTIONS (2)
  - Muscle contractions involuntary [Unknown]
  - Hypoglycaemic unconsciousness [Unknown]
